FAERS Safety Report 10574061 (Version 2)
Quarter: 2014Q4

REPORT INFORMATION
  Report Type: Report from Study
  Country: PE (occurrence: PE)
  Receive Date: 20141110
  Receipt Date: 20141112
  Transmission Date: 20150529
  Serious: Yes (Death, Other)
  Sender: FDA-Public Use
  Company Number: PE-GLAXOSMITHKLINE-PE2014GSK015778

PATIENT
  Sex: Male

DRUGS (1)
  1. FLUTICASONE PROPIONATE+SALMETEROL XINAFOATE [Suspect]
     Active Substance: FLUTICASONE PROPIONATE\SALMETEROL XINAFOATE
     Indication: ASTHMA
     Dosage: 250 UG, U
     Route: 055
     Dates: start: 20140626

REACTIONS (2)
  - Pneumonia [Recovering/Resolving]
  - Death [Fatal]
